FAERS Safety Report 13399575 (Version 1)
Quarter: 2017Q2

REPORT INFORMATION
  Report Type: Spontaneous
  Country: US (occurrence: US)
  Receive Date: 20170403
  Receipt Date: 20170403
  Transmission Date: 20170830
  Serious: No
  Sender: FDA-Public Use
  Company Number: None

PATIENT
  Age: 61 Year
  Sex: Female
  Weight: 47.7 kg

DRUGS (8)
  1. SERTRALINE HCL [Suspect]
     Active Substance: SERTRALINE HYDROCHLORIDE
     Indication: ANXIETY
     Route: 048
     Dates: start: 20170321, end: 20170321
  2. SERTRALINE HCL [Suspect]
     Active Substance: SERTRALINE HYDROCHLORIDE
     Indication: DEPRESSION
     Route: 048
     Dates: start: 20170321, end: 20170321
  3. NEXIUM [Concomitant]
     Active Substance: ESOMEPRAZOLE MAGNESIUM
  4. ASPIRIN. [Concomitant]
     Active Substance: ASPIRIN
  5. GINKGO BILOBA [Concomitant]
     Active Substance: GINKGO
  6. RISEDRONATE NA [Concomitant]
     Active Substance: RISEDRONATE SODIUM
  7. NIASPAN [Concomitant]
     Active Substance: NIACIN
  8. MULTI-VITAMIN [Concomitant]
     Active Substance: .ALPHA.-TOCOPHEROL ACETATE, DL-\ASCORBIC ACID\CYANOCOBALAMIN\FLUORIDE ION\FOLIC ACID\NIACIN\PYRIDOXINE\RIBOFLAVIN\THIAMINE\VITAMIN A\VITAMIN D

REACTIONS (9)
  - Nausea [None]
  - Chills [None]
  - Vision blurred [None]
  - Headache [None]
  - Hyperhidrosis [None]
  - Dizziness [None]
  - Asthenia [None]
  - Frequent bowel movements [None]
  - Dry mouth [None]

NARRATIVE: CASE EVENT DATE: 20170321
